FAERS Safety Report 8923231 (Version 1)
Quarter: 2012Q4

REPORT INFORMATION
  Report Type: Spontaneous
  Country: US (occurrence: None)
  Receive Date: 20121115
  Receipt Date: 20121115
  Transmission Date: 20130627
  Serious: No
  Sender: FDA-Public Use
  Company Number: None

PATIENT
  Age: 63 Year
  Sex: Male

DRUGS (2)
  1. AZITHROMYCIN [Suspect]
     Dates: start: 20100215, end: 20100219
  2. LEVAQUIN [Suspect]
     Dates: start: 20100219, end: 20100223

REACTIONS (8)
  - Antinuclear antibody positive [None]
  - Smooth muscle antibody positive [None]
  - Blood immunoglobulin G increased [None]
  - Hepatitis cholestatic [None]
  - Hepatic necrosis [None]
  - Drug-induced liver injury [None]
  - Hepatic encephalopathy [None]
  - Ascites [None]
